FAERS Safety Report 19425770 (Version 1)
Quarter: 2021Q2

REPORT INFORMATION
  Report Type: Spontaneous
  Country: US (occurrence: US)
  Receive Date: 20210616
  Receipt Date: 20210616
  Transmission Date: 20210717
  Serious: No
  Sender: FDA-Public Use
  Company Number: US-BEIGENE USA INC-BGN-2021-002044

PATIENT

DRUGS (2)
  1. BRUKINSA [Suspect]
     Active Substance: ZANUBRUTINIB
     Indication: NEOPLASM MALIGNANT
  2. BABY ASPIRIN [Concomitant]
     Active Substance: ASPIRIN
     Dosage: ONE [TAB] THREE DAYS OUT OF THE WEEK

REACTIONS (9)
  - Atrial fibrillation [Unknown]
  - Rash [Unknown]
  - Platelet count decreased [Unknown]
  - White blood cell count decreased [Unknown]
  - Mitral valve incompetence [Unknown]
  - Haemorrhage [Recovered/Resolved]
  - Off label use [Unknown]
  - Red blood cell count decreased [Unknown]
  - Contusion [Unknown]
